FAERS Safety Report 12201579 (Version 1)
Quarter: 2016Q1

REPORT INFORMATION
  Report Type: Spontaneous
  Country: US (occurrence: US)
  Receive Date: 20160322
  Receipt Date: 20160322
  Transmission Date: 20160526
  Serious: No
  Sender: FDA-Public Use
  Company Number: US-SA-2015SA109728

PATIENT
  Age: 87 Year
  Sex: Male

DRUGS (2)
  1. NASACORT ALLERGY 24HR [Suspect]
     Active Substance: TRIAMCINOLONE ACETONIDE
     Indication: HEAD DISCOMFORT
     Dosage: PRODUCT START DATE: 2 TO 2 1/2 YEARS?AT 9.30-10 PM
     Route: 045
  2. NEURONTIN [Concomitant]
     Active Substance: GABAPENTIN
     Route: 065

REACTIONS (2)
  - Nasal dryness [Unknown]
  - Rhinorrhoea [Unknown]
